FAERS Safety Report 9064693 (Version 1)
Quarter: 2013Q1

REPORT INFORMATION
  Report Type: Spontaneous
  Country: DE (occurrence: DE)
  Receive Date: 20130214
  Receipt Date: 20130214
  Transmission Date: 20140127
  Serious: Yes (Hospitalization)
  Sender: FDA-Public Use
  Company Number: DE-AMGEN-DEUSP2013009915

PATIENT
  Age: 54 Year
  Sex: Female

DRUGS (3)
  1. ENBREL [Suspect]
     Indication: PSORIASIS
     Dosage: 50 MG, WEEKLY
     Dates: start: 20111005, end: 20120402
  2. AMITRIPTYLINE [Concomitant]
     Dosage: UNK
  3. NOVAMINOSULFON [Concomitant]
     Dosage: UNK

REACTIONS (6)
  - Intervertebral disc protrusion [Not Recovered/Not Resolved]
  - Spinal cord ischaemia [Not Recovered/Not Resolved]
  - Hemiparesis [Not Recovered/Not Resolved]
  - Dysuria [Not Recovered/Not Resolved]
  - Pain in extremity [Not Recovered/Not Resolved]
  - Monoplegia [Not Recovered/Not Resolved]
